FAERS Safety Report 6299580-3 (Version None)
Quarter: 2009Q3

REPORT INFORMATION
  Report Type: 
  Country: None (occurrence: None)
  Receive Date: 20090805
  Receipt Date: 20090805
  Transmission Date: 20100115
  Serious: Yes (Hospitalization)
  Sender: FDA-Public Use
  Company Number: None

PATIENT
  Sex: Female
  Weight: 54.8852 kg

DRUGS (7)
  1. CLEVIPREX [Suspect]
     Indication: HYPERTENSIVE CRISIS
     Dosage: 1-2MG/HR, TITRATE TO SBP140 CONTINUOUS IV DRI[
     Route: 041
     Dates: start: 20090207, end: 20090209
  2. CLEVIPREX [Suspect]
     Indication: HYPERTENSIVE CRISIS
     Dosage: 1-2MG/HR, TITRATE TO SBP140 CONTINUOUS IV DRI[
     Route: 041
     Dates: start: 20090211, end: 20090211
  3. LABETALOL HCL [Concomitant]
  4. NIPRIDE [Concomitant]
  5. AMLODIPINE [Concomitant]
  6. CLONIDINE [Concomitant]
  7. HYDRALAZINE HCL [Concomitant]

REACTIONS (1)
  - NO ADVERSE EVENT [None]
